FAERS Safety Report 9902344 (Version 2)
Quarter: 2014Q2

REPORT INFORMATION
  Report Type: Spontaneous
  Country: PT (occurrence: PT)
  Receive Date: 20140217
  Receipt Date: 20140528
  Transmission Date: 20141212
  Serious: Yes (Other)
  Sender: FDA-Public Use
  Company Number: PT-JNJFOC-20140205243

PATIENT
  Age: 56 Year
  Sex: Male
  Weight: 120 kg

DRUGS (3)
  1. STELARA [Suspect]
     Indication: PSORIATIC ARTHROPATHY
     Route: 058
     Dates: start: 201109, end: 201307
  2. STELARA [Suspect]
     Indication: PSORIASIS
     Route: 058
     Dates: start: 201109, end: 201307
  3. NAPROXEN [Concomitant]
     Indication: HYPERTENSION
     Route: 065

REACTIONS (2)
  - Surgery [Unknown]
  - Cholangiocarcinoma [Unknown]
